FAERS Safety Report 6110581-8 (Version None)
Quarter: 2009Q1

REPORT INFORMATION
  Report Type: 
  Country: None (occurrence: None)
  Receive Date: 20090310
  Receipt Date: 20090227
  Transmission Date: 20090719
  Serious: Yes (Hospitalization)
  Sender: FDA-Public Use
  Company Number: US-JNJCH-2009005665

PATIENT
  Age: 59 Year
  Sex: Female
  Weight: 72.6 kg

DRUGS (6)
  1. ROGAINE [Suspect]
     Indication: ALOPECIA
     Dosage: TEXT:RECOMMENDED DOSE ONCE DAILY
     Route: 061
     Dates: start: 20090224, end: 20090224
  2. INSULIN [Concomitant]
     Indication: DIABETES MELLITUS
     Dosage: TEXT:ONE UNIT, THREE TIMES PER DAY
     Route: 065
  3. CLONIDINE [Concomitant]
     Indication: HYPERTENSION
     Dosage: TEXT:0.1 MG, TWO TIMES PER DAY
     Route: 065
  4. LANTUS [Concomitant]
     Indication: DIABETES MELLITUS
     Dosage: TEXT:8 UNITS, ONCE DAILY
     Route: 065
  5. PREVACID [Concomitant]
     Indication: GASTRITIS
     Dosage: TEXT:15 MG, ONCE DAILY
     Route: 065
  6. SIMVASTATIN [Concomitant]
     Indication: BLOOD CHOLESTEROL INCREASED
     Dosage: TEXT:20 MG ONCE DAILY
     Route: 065

REACTIONS (7)
  - CHEST DISCOMFORT [None]
  - DIZZINESS [None]
  - FLUSHING [None]
  - MUSCULOSKELETAL DISCOMFORT [None]
  - NAUSEA [None]
  - SPEECH DISORDER [None]
  - WRONG DRUG ADMINISTERED [None]
